FAERS Safety Report 8900727 (Version 3)
Quarter: 2013Q1

REPORT INFORMATION
  Report Type: Spontaneous
  Country: DK (occurrence: DK)
  Receive Date: 20121109
  Receipt Date: 20130321
  Transmission Date: 20140127
  Serious: Yes (Hospitalization)
  Sender: FDA-Public Use
  Company Number: DK-MUTUAL PHARMACEUTICAL COMPANY, INC.-AMTP20120001

PATIENT
  Age: 49 Year
  Sex: Male

DRUGS (6)
  1. AMITRIPTYLIN [Suspect]
     Indication: PAIN
     Dosage: 40 MG (10 MG TO 30 MG)
     Route: 048
     Dates: start: 20100825, end: 201109
  2. AMITRIPTYLIN [Suspect]
     Route: 048
     Dates: start: 201103, end: 20110711
  3. LYRICA [Suspect]
     Indication: NEURALGIA
     Route: 048
     Dates: start: 201105, end: 20110823
  4. NORITREN [Suspect]
     Indication: PAIN
     Dosage: 10-25 MG
     Route: 048
     Dates: start: 20110526, end: 20110823
  5. MIRTAZAPIN [Concomitant]
     Indication: DEPRESSION
     Route: 048
     Dates: start: 20110503
  6. GABAPENTIN (GABAPENTIN) [Concomitant]
     Indication: PRODUCT USED FOR UNKNOWN INDICATION
     Dosage: 600-900 MG
     Route: 048
     Dates: start: 20110526, end: 20110711

REACTIONS (7)
  - Bundle branch block left [Recovered/Resolved]
  - Chest pain [Recovered/Resolved with Sequelae]
  - Ejection fraction decreased [Not Recovered/Not Resolved]
  - Dyspnoea [Recovered/Resolved with Sequelae]
  - Ventricular dyskinesia [Not Recovered/Not Resolved]
  - Tachycardia [Recovered/Resolved]
  - Off label use [Unknown]
